FAERS Safety Report 4480011-0 (Version None)
Quarter: 2004Q4

REPORT INFORMATION
  Report Type: 
  Country: None (occurrence: None)
  Receive Date: 20041018
  Receipt Date: 20040930
  Transmission Date: 20050328
  Serious: Yes (Death)
  Sender: FDA-Public Use
  Company Number: DSA_25089_2004

PATIENT
  Age: 51 Year

DRUGS (3)
  1. DILTIAZEM HCL [Suspect]
     Dosage: DF   PO
     Route: 048
  2. ACETAMINOPHEN/TRAMADOL [Suspect]
     Dosage: DF PO
     Route: 048
  3. ETHANOL [Suspect]
     Dosage: DF PO
     Route: 048

REACTIONS (3)
  - ANALGESIC DRUG LEVEL INCREASED [None]
  - COMPLETED SUICIDE [None]
  - MULTIPLE DRUG OVERDOSE INTENTIONAL [None]
